FAERS Safety Report 24162539 (Version 1)
Quarter: 2024Q3

REPORT INFORMATION
  Report Type: Spontaneous
  Country: US (occurrence: None)
  Receive Date: 20240731
  Receipt Date: 20240731
  Transmission Date: 20241016
  Serious: Yes (Other)
  Sender: Public
  Company Number: None

PATIENT
  Age: 41 Year
  Sex: Male
  Weight: 106 kg

DRUGS (1)
  1. CYANOCOBALAMIN\SEMAGLUTIDE [Suspect]
     Active Substance: CYANOCOBALAMIN\SEMAGLUTIDE
     Indication: Overweight
     Dosage: OTHER FREQUENCY : ONCE WEEKLY;?
     Route: 058
     Dates: start: 20240727, end: 20240729

REACTIONS (4)
  - Incorrect dose administered [None]
  - Vomiting [None]
  - Headache [None]
  - Feeding disorder [None]

NARRATIVE: CASE EVENT DATE: 20240727
